FAERS Safety Report 9463250 (Version 3)
Quarter: 2014Q1

REPORT INFORMATION
  Report Type: Report from Study
  Country: US (occurrence: US)
  Receive Date: 20130819
  Receipt Date: 20140223
  Transmission Date: 20141002
  Serious: Yes (Other)
  Sender: FDA-Public Use
  Company Number: US-ROCHE-1262149

PATIENT
  Age: 92 Year
  Sex: Male

DRUGS (2)
  1. RANIBIZUMAB [Suspect]
     Indication: AGE-RELATED MACULAR DEGENERATION
     Route: 050
     Dates: end: 201308
  2. FLUOROMETHOLONE [Concomitant]
     Indication: DRY EYE
     Route: 047

REACTIONS (6)
  - Thrombosis [Unknown]
  - Lacrimation increased [Unknown]
  - Eye irritation [Unknown]
  - Visual acuity reduced [Unknown]
  - Amnesia [Unknown]
  - Hearing impaired [Unknown]
